FAERS Safety Report 9826011 (Version 2)
Quarter: 2014Q1

REPORT INFORMATION
  Report Type: Spontaneous
  Country: TR (occurrence: TR)
  Receive Date: 20140117
  Receipt Date: 20140117
  Transmission Date: 20141002
  Serious: Yes (Other)
  Sender: FDA-Public Use
  Company Number: TR-ASTELLAS-2014US000213

PATIENT
  Age: 40 Year
  Sex: Male

DRUGS (1)
  1. AMBISOME [Suspect]
     Indication: FUNGAL INFECTION
     Dosage: 5 MG/KG, UNKNOWN/D, 400 MG QD
     Route: 065
     Dates: start: 20131206, end: 20131213

REACTIONS (5)
  - Wrong technique in drug usage process [Unknown]
  - Renal tubular necrosis [Unknown]
  - General physical health deterioration [Recovered/Resolved]
  - Abdominal pain upper [Unknown]
  - Blood creatinine increased [Recovering/Resolving]
